FAERS Safety Report 16862178 (Version 1)
Quarter: 2019Q3

REPORT INFORMATION
  Report Type: Spontaneous
  Country: US (occurrence: US)
  Receive Date: 20190927
  Receipt Date: 20190927
  Transmission Date: 20191005
  Serious: Yes (Other)
  Sender: FDA-Public Use
  Company Number: US-JNJFOC-20190925208

PATIENT
  Sex: Male

DRUGS (1)
  1. SPRAVATO [Suspect]
     Active Substance: ESKETAMINE
     Indication: PRODUCT USED FOR UNKNOWN INDICATION

REACTIONS (7)
  - Sensory disturbance [Unknown]
  - Eye disorder [Unknown]
  - Balance disorder [Unknown]
  - Insomnia [Unknown]
  - Dizziness [Unknown]
  - Dyspnoea [Unknown]
  - Hypokinesia [Unknown]

NARRATIVE: CASE EVENT DATE: 20190916
